FAERS Safety Report 21326395 (Version 1)
Quarter: 2022Q3

REPORT INFORMATION
  Report Type: Spontaneous
  Country: BR (occurrence: BR)
  Receive Date: 20220913
  Receipt Date: 20220913
  Transmission Date: 20221026
  Serious: Yes (Other)
  Sender: FDA-Public Use
  Company Number: BR-NOVOPROD-956097

PATIENT
  Age: 25 Year
  Sex: Female

DRUGS (2)
  1. OZEMPIC [Suspect]
     Active Substance: SEMAGLUTIDE
     Indication: Obesity
     Dosage: 0.5 UNK
  2. EXODUS [ESCITALOPRAM OXALATE] [Concomitant]
     Indication: Product used for unknown indication
     Dosage: 10 MG

REACTIONS (5)
  - Head injury [Unknown]
  - Syncope [Unknown]
  - Dizziness [Unknown]
  - Diarrhoea [Unknown]
  - Product use in unapproved indication [Unknown]
